FAERS Safety Report 15386977 (Version 1)
Quarter: 2018Q3

REPORT INFORMATION
  Report Type: Spontaneous
  Country: US (occurrence: US)
  Receive Date: 20180914
  Receipt Date: 20180914
  Transmission Date: 20181010
  Serious: Yes (Other)
  Sender: FDA-Public Use
  Company Number: US-TEVA-2018-US-952900

PATIENT
  Age: 57 Year
  Sex: Female

DRUGS (3)
  1. DILANTIN [Concomitant]
     Active Substance: PHENYTOIN
     Route: 065
  2. PRIMADONE [Concomitant]
     Active Substance: PRIMIDONE
     Route: 065
  3. LAMOTRIGINE. [Suspect]
     Active Substance: LAMOTRIGINE
     Indication: EPILEPSY
     Dosage: ONE 150 MG TABLET IN THE MORNING AND ONE AND A HALF 150 MG TABLETS AT NIGHT
     Route: 065
     Dates: end: 1971

REACTIONS (5)
  - Encephalitis viral [Unknown]
  - Overdose [Unknown]
  - Metabolic disorder [Unknown]
  - Wrong technique in product usage process [Unknown]
  - Eye movement disorder [Unknown]
